FAERS Safety Report 5792225-8 (Version None)
Quarter: 2008Q2

REPORT INFORMATION
  Report Type: 
  Country: None (occurrence: None)
  Receive Date: 20080623
  Receipt Date: 20080611
  Transmission Date: 20081010
  Serious: Yes (Other)
  Sender: FDA-Public Use
  Company Number: 2008BI013237

PATIENT
  Age: 36 Year
  Sex: Female

DRUGS (2)
  1. TYSABRI [Suspect]
     Indication: MULTIPLE SCLEROSIS
     Dosage: 300 MG;QM;IV
     Route: 042
     Dates: start: 20080204
  2. AVONEX [Concomitant]

REACTIONS (9)
  - ABDOMINAL DISCOMFORT [None]
  - CENTRAL NERVOUS SYSTEM LESION [None]
  - COUGH [None]
  - GRANULOCYTOPENIA [None]
  - INFLUENZA [None]
  - MALAISE [None]
  - MULTIPLE SCLEROSIS RELAPSE [None]
  - NASOPHARYNGITIS [None]
  - PHARYNGITIS STREPTOCOCCAL [None]
